FAERS Safety Report 17938473 (Version 1)
Quarter: 2020Q2

REPORT INFORMATION
  Report Type: Spontaneous
  Country: CA (occurrence: CA)
  Receive Date: 20200624
  Receipt Date: 20200624
  Transmission Date: 20200714
  Serious: Yes (Other)
  Sender: FDA-Public Use
  Company Number: CA-TEVA-2020-CA-1791374

PATIENT
  Sex: Female

DRUGS (4)
  1. LEVODOPA [Suspect]
     Active Substance: LEVODOPA
     Indication: PRODUCT USED FOR UNKNOWN INDICATION
     Route: 065
  2. YELLOW CANNABIS SOFTGELS (HYBRID) BY SPECTRUM CANNABIS [Suspect]
     Active Substance: CANNABIDIOL\.DELTA.8-TETRAHYDROCANNABINOL\HERBALS
     Indication: MEDICAL CANNABIS THERAPY
     Dosage: 2 DOSAGE FORMS DAILY;
     Route: 048
  3. PRAMIPEXOLE. [Suspect]
     Active Substance: PRAMIPEXOLE
     Indication: PRODUCT USED FOR UNKNOWN INDICATION
     Route: 065
  4. AMANTADINE. [Suspect]
     Active Substance: AMANTADINE HYDROCHLORIDE
     Indication: PRODUCT USED FOR UNKNOWN INDICATION
     Route: 065

REACTIONS (2)
  - Hallucination [Recovered/Resolved]
  - Euphoric mood [Recovered/Resolved]
